FAERS Safety Report 7414928-1 (Version None)
Quarter: 2011Q2

REPORT INFORMATION
  Report Type: 
  Country: None (occurrence: None)
  Receive Date: 20110414
  Receipt Date: 20110224
  Transmission Date: 20111010
  Serious: Yes (Hospitalization)
  Sender: FDA-Public Use
  Company Number: US-BAYER-201041435NA

PATIENT
  Age: 31 Year
  Sex: Female
  Weight: 120.18 kg

DRUGS (8)
  1. YASMIN [Suspect]
     Indication: ACNE
  2. YASMIN [Suspect]
     Indication: PREMENSTRUAL SYNDROME
  3. ALBUTEROL SULFATE [Concomitant]
     Dosage: UNK
  4. LEXAPRO [Concomitant]
     Indication: DEPRESSION
     Dosage: 20 MG, QD
     Route: 048
  5. GEODON [Concomitant]
     Indication: BIPOLAR DISORDER
     Dosage: 120 MG, QD
     Route: 048
  6. NORPLANT [Concomitant]
  7. AMBIEN [Concomitant]
     Indication: SLEEP DISORDER
     Dosage: 10 MG, QD
     Route: 048
  8. CLONAZEPAM [Concomitant]
     Indication: ANXIETY
     Dosage: 2 MG, QD
     Route: 048

REACTIONS (2)
  - PULMONARY EMBOLISM [None]
  - INJURY [None]
